FAERS Safety Report 11615024 (Version 1)
Quarter: 2015Q4

REPORT INFORMATION
  Report Type: Spontaneous
  Country: US (occurrence: None)
  Receive Date: 20151008
  Receipt Date: 20151008
  Transmission Date: 20160304
  Serious: Yes (Death)
  Sender: FDA-Public Use
  Company Number: None

PATIENT
  Age: 61 Year
  Sex: Female
  Weight: 84.5 kg

DRUGS (1)
  1. CARBON DIOXIDE PREPERITONEAL INSUFFLATION [Suspect]
     Active Substance: CARBON DIOXIDE
     Indication: LAPAROSCOPY
     Dates: start: 20150818

REACTIONS (6)
  - Respiratory disorder [None]
  - Heart rate irregular [None]
  - Air embolism [None]
  - Cardiomegaly [None]
  - Bradycardia [None]
  - Hypotension [None]

NARRATIVE: CASE EVENT DATE: 20150818
